FAERS Safety Report 5033598-3 (Version None)
Quarter: 2006Q2

REPORT INFORMATION
  Report Type: 
  Country: None (occurrence: None)
  Receive Date: 20060620
  Receipt Date: 20060607
  Transmission Date: 20061013
  Serious: Yes (Other)
  Sender: FDA-Public Use
  Company Number: 2006074328

PATIENT
  Age: 82 Year
  Sex: Male

DRUGS (1)
  1. XALATAN [Suspect]
     Indication: INTRAOCULAR PRESSURE INCREASED
     Dosage: UNKNOWN, OPHTHALMIC
     Route: 047

REACTIONS (2)
  - ENTROPION [None]
  - HYPERTRICHOSIS [None]
